FAERS Safety Report 6615322-3 (Version None)
Quarter: 2010Q1

REPORT INFORMATION
  Report Type: 
  Country: None (occurrence: None)
  Receive Date: 20100305
  Receipt Date: 20091111
  Transmission Date: 20100710
  Serious: No
  Sender: FDA-Public Use
  Company Number: A0796244A

PATIENT
  Age: 56 Year
  Sex: Female

DRUGS (8)
  1. REQUIP [Suspect]
     Indication: RESTLESS LEGS SYNDROME
     Route: 048
     Dates: start: 20051101, end: 20090218
  2. THYROID REPLACEMENT [Concomitant]
  3. NEXIUM [Concomitant]
  4. LIPITOR [Concomitant]
  5. LEXAPRO [Concomitant]
  6. INSULIN [Concomitant]
  7. METFORMIN HYDROCHLORIDE [Concomitant]
  8. CPAP [Concomitant]

REACTIONS (1)
  - PATHOLOGICAL GAMBLING [None]
